FAERS Safety Report 5467752-3 (Version None)
Quarter: 2007Q3

REPORT INFORMATION
  Report Type: 
  Country: None (occurrence: None)
  Receive Date: 20070926
  Receipt Date: 20070919
  Transmission Date: 20080115
  Serious: Yes (Other)
  Sender: FDA-Public Use
  Company Number: PHFR2007GB02786

PATIENT
  Sex: Female

DRUGS (2)
  1. VOLTAREN [Suspect]
     Dosage: 25MG/UNK
     Route: 054
  2. VOLTAREN [Suspect]
     Dosage: 150MG/UNK
     Route: 054

REACTIONS (3)
  - PAIN [None]
  - RECTAL HAEMORRHAGE [None]
  - VISION BLURRED [None]
